FAERS Safety Report 23790747 (Version 2)
Quarter: 2024Q3

REPORT INFORMATION
  Report Type: Spontaneous
  Country: IE (occurrence: IE)
  Receive Date: 20240427
  Receipt Date: 20240709
  Transmission Date: 20241017
  Serious: Yes (Congenital Anomaly, Other)
  Sender: TEVA
  Company Number: None

PATIENT
  Sex: Male

DRUGS (1)
  1. ATORVASTATIN [Suspect]
     Active Substance: ATORVASTATIN
     Indication: Product used for unknown indication
     Dosage: ATORVASTATIN (GENERIC)
     Route: 065
     Dates: start: 20230101, end: 20230301

REACTIONS (2)
  - Maternal exposure during pregnancy [Recovered/Resolved]
  - Duodenal atresia [Recovered/Resolved]

NARRATIVE: CASE EVENT DATE: 20230911
